FAERS Safety Report 11216556 (Version 3)
Quarter: 2015Q3

REPORT INFORMATION
  Report Type: Spontaneous
  Country: US (occurrence: US)
  Receive Date: 20150624
  Receipt Date: 20150824
  Transmission Date: 20151125
  Serious: Yes (Other)
  Sender: FDA-Public Use
  Company Number: US-PERRIGO-15US006265

PATIENT
  Age: 61 Year
  Sex: Female
  Weight: 83.9 kg

DRUGS (2)
  1. LICE TREATMENT (PERMETHRIN) [Suspect]
     Active Substance: PERMETHRIN
     Indication: LICE INFESTATION
     Dosage: 2 OUNCES, SINGLE
     Route: 061
     Dates: start: 20150608, end: 20150608
  2. LICE TREATMENT (PERMETHRIN) [Suspect]
     Active Substance: PERMETHRIN
     Dosage: UNKNOWN, SINGLE
     Route: 047
     Dates: start: 20150608, end: 20150608

REACTIONS (5)
  - Chemical injury [Recovered/Resolved]
  - Drug administration error [Recovered/Resolved]
  - Eye irritation [Recovered/Resolved]
  - Corneal abrasion [Recovered/Resolved]
  - Vision blurred [Recovered/Resolved]

NARRATIVE: CASE EVENT DATE: 20150608
